FAERS Safety Report 4748022-5 (Version None)
Quarter: 2005Q3

REPORT INFORMATION
  Report Type: 
  Country: None (occurrence: None)
  Receive Date: 20050815
  Receipt Date: 20050701
  Transmission Date: 20060218
  Serious: No
  Sender: FDA-Public Use
  Company Number: USA0507101916

PATIENT
  Age: 67 Year
  Sex: Male

DRUGS (7)
  1. CIALIS [Suspect]
     Dosage: 20 MG AS NEEDED
  2. THORAZINE [Concomitant]
  3. ATIVAN [Concomitant]
  4. LEVBID (HYOSCYAMINE SULFATE) [Concomitant]
  5. OXYCODONE [Concomitant]
  6. LEXAPRO [Concomitant]
  7. XANAX [Concomitant]

REACTIONS (2)
  - GASTRITIS [None]
  - NAUSEA [None]
